FAERS Safety Report 17292692 (Version 1)
Quarter: 2020Q1

REPORT INFORMATION
  Report Type: Spontaneous
  Country: US (occurrence: US)
  Receive Date: 20200119
  Receipt Date: 20200119
  Transmission Date: 20200409
  Serious: Yes (Life-Threatening, Hospitalization)
  Sender: FDA-Public Use
  Company Number: None

PATIENT
  Age: 45 Year
  Sex: Female
  Weight: 54 kg

DRUGS (1)
  1. METAMIZOLE [Suspect]
     Active Substance: METAMIZOLE

REACTIONS (4)
  - Platelet count decreased [None]
  - Intentional product use issue [None]
  - Ecchymosis [None]
  - Haemorrhage [None]

NARRATIVE: CASE EVENT DATE: 20200118
